FAERS Safety Report 13726321 (Version 2)
Quarter: 2017Q3

REPORT INFORMATION
  Report Type: Report from Study
  Country: CA (occurrence: CA)
  Receive Date: 20170706
  Receipt Date: 20170828
  Transmission Date: 20171127
  Serious: Yes (Hospitalization)
  Sender: FDA-Public Use
  Company Number: CA-BAYER-2017-095967

PATIENT
  Age: 67 Year
  Sex: Female

DRUGS (2)
  1. ADEMPAS [Suspect]
     Active Substance: RIOCIGUAT
     Indication: PULMONARY HYPERTENSION
     Dosage: 2.5 MG, TID
     Route: 048
     Dates: start: 20130601
  2. ADEMPAS [Suspect]
     Active Substance: RIOCIGUAT
     Indication: PULMONARY HYPERTENSION

REACTIONS (8)
  - Malaise [Not Recovered/Not Resolved]
  - Blood calcium increased [Not Recovered/Not Resolved]
  - Hypotension [Unknown]
  - Constipation [Recovering/Resolving]
  - Abdominal pain upper [Recovering/Resolving]
  - Hypophagia [Recovering/Resolving]
  - Hospitalisation [Unknown]
  - Parathyroid disorder [Not Recovered/Not Resolved]

NARRATIVE: CASE EVENT DATE: 201705
